FAERS Safety Report 5187997-X (Version None)
Quarter: 2006Q4

REPORT INFORMATION
  Report Type: 
  Country: None (occurrence: None)
  Receive Date: 20061221
  Receipt Date: 20061214
  Transmission Date: 20070319
  Serious: Yes (Other)
  Sender: FDA-Public Use
  Company Number: 2006UW28091

PATIENT
  Age: 65 Year
  Sex: Male
  Weight: 92 kg

DRUGS (5)
  1. ZOLADEX [Suspect]
     Indication: PROSTATE CANCER
     Route: 058
     Dates: start: 20050323, end: 20060101
  2. ZOLADEX [Suspect]
     Route: 058
     Dates: start: 20060101
  3. ANDROCUR [Concomitant]
     Indication: PROSTATE CANCER
     Route: 048
     Dates: start: 20050501, end: 20050701
  4. ANDROCUR [Concomitant]
     Route: 048
     Dates: start: 20060601, end: 20061001
  5. ISORDIL [Concomitant]
     Indication: CHEST PAIN

REACTIONS (4)
  - CHEST PAIN [None]
  - DIZZINESS [None]
  - DYSPNOEA [None]
  - SYNCOPE [None]
